FAERS Safety Report 9609359 (Version 2)
Quarter: 2014Q1

REPORT INFORMATION
  Report Type: Spontaneous
  Country: US (occurrence: US)
  Receive Date: 20131009
  Receipt Date: 20140121
  Transmission Date: 20141002
  Serious: Yes (Other)
  Sender: FDA-Public Use
  Company Number: US-JNJFOC-20131004643

PATIENT
  Sex: 0

DRUGS (1)
  1. STELARA [Suspect]
     Indication: CROHN^S DISEASE
     Route: 058

REACTIONS (3)
  - Surgery [Unknown]
  - Weight decreased [Unknown]
  - Off label use [Unknown]
